FAERS Safety Report 5812685-3 (Version None)
Quarter: 2008Q3

REPORT INFORMATION
  Report Type: 
  Country: None (occurrence: None)
  Receive Date: 20080717
  Receipt Date: 20080716
  Transmission Date: 20090109
  Serious: Yes (Death, Life-Threatening, Other)
  Sender: FDA-Public Use
  Company Number: DK-WYE-G01871308

PATIENT
  Sex: Female

DRUGS (3)
  1. GEMTUZUMAB OZOGAMICIN [Suspect]
     Indication: ACUTE MYELOID LEUKAEMIA
  2. CYTARABINE [Suspect]
  3. DAUNORUBICIN HCL [Suspect]

REACTIONS (3)
  - NEUTROPENIA [None]
  - PNEUMONIA [None]
  - SEPSIS [None]
